FAERS Safety Report 13626027 (Version 2)
Quarter: 2017Q2

REPORT INFORMATION
  Report Type: Report from Study
  Country: CN (occurrence: CN)
  Receive Date: 20170608
  Receipt Date: 20170613
  Transmission Date: 20170830
  Serious: Yes (Other)
  Sender: FDA-Public Use
  Company Number: CN-ASTELLAS-2016US039967

PATIENT
  Age: 70 Year
  Sex: Female

DRUGS (1)
  1. ERLOTINIB [Suspect]
     Active Substance: ERLOTINIB
     Indication: NON-SMALL CELL LUNG CANCER
     Route: 048
     Dates: start: 20150915

REACTIONS (7)
  - Abdominal pain [Unknown]
  - Fatigue [Unknown]
  - Hand fracture [Unknown]
  - Fall [Unknown]
  - Pain [Unknown]
  - Discomfort [Unknown]
  - Bedridden [Unknown]

NARRATIVE: CASE EVENT DATE: 20170501
